FAERS Safety Report 5489992-X (Version None)
Quarter: 2007Q4

REPORT INFORMATION
  Report Type: 
  Country: None (occurrence: None)
  Receive Date: 20071018
  Receipt Date: 20071009
  Transmission Date: 20080405
  Serious: Yes (Hospitalization)
  Sender: FDA-Public Use
  Company Number: DE-ROCHE-524556

PATIENT
  Age: 73 Year
  Sex: Male
  Weight: 61 kg

DRUGS (1)
  1. CAPECITABINE [Suspect]
     Indication: RECTAL CANCER
     Dosage: MONOTHERAPY. INDICATION AS PER PROTOCOL: R0 RESECTED COLON CANCER, DUKES C.
     Route: 048
     Dates: end: 20070916

REACTIONS (3)
  - ABDOMINAL PAIN UPPER [None]
  - MEMORY IMPAIRMENT [None]
  - PERSONALITY CHANGE [None]
